FAERS Safety Report 8505316-5 (Version None)
Quarter: 2012Q3

REPORT INFORMATION
  Report Type: 
  Country: None (occurrence: None)
  Receive Date: 20120712
  Receipt Date: 20120706
  Transmission Date: 20120928
  Serious: Yes (Other)
  Sender: FDA-Public Use
  Company Number: US-PFIZER INC-2012163630

PATIENT
  Sex: Female

DRUGS (6)
  1. SIMVASTATIN [Suspect]
     Indication: BLOOD CHOLESTEROL INCREASED
     Dosage: UNK
     Dates: end: 20111101
  2. DIAZEPAM [Suspect]
     Indication: MUSCLE SPASMS
     Dosage: UNK
     Dates: end: 20111101
  3. IBUPROFEN [Suspect]
     Indication: DEPRESSION
     Dosage: UNK
     Dates: end: 20111101
  4. GABAPENTIN [Suspect]
     Dosage: 6 DF, 1X/DAY
     Dates: end: 20111101
  5. REBIF [Suspect]
     Indication: MULTIPLE SCLEROSIS
     Dosage: UNK
     Dates: start: 20110120
  6. AMPYRA [Suspect]
     Dosage: 10 MG, UNK
     Dates: end: 20111101

REACTIONS (6)
  - MENTAL DISORDER [None]
  - CONVULSION [None]
  - SUICIDAL IDEATION [None]
  - EYE MOVEMENT DISORDER [None]
  - MOTOR DYSFUNCTION [None]
  - URINARY INCONTINENCE [None]
